FAERS Safety Report 6031329-1 (Version None)
Quarter: 2008Q4

REPORT INFORMATION
  Report Type: 
  Country: None (occurrence: None)
  Receive Date: 20081224
  Receipt Date: 20080730
  Transmission Date: 20090506
  Serious: Yes (Other)
  Sender: FDA-Public Use
  Company Number: US-CVT-080073

PATIENT
  Age: 75 Year
  Sex: Male
  Weight: 90 kg

DRUGS (14)
  1. RANEXA [Suspect]
     Indication: ANGINA PECTORIS
     Dosage: 500 MG, BID, ORAL
     Route: 048
     Dates: start: 20080616, end: 20080714
  2. PROCRIT [Concomitant]
  3. LASIX [Concomitant]
  4. LIPITOR [Concomitant]
  5. ZYLOPRIM [Concomitant]
  6. ZETIA [Concomitant]
  7. ZESTRIL [Concomitant]
  8. COREG [Concomitant]
  9. IMDUR [Concomitant]
  10. PLAVIX [Concomitant]
  11. ASPIRIN [Concomitant]
  12. OMEPRAZOLE [Concomitant]
  13. FOLTX (CYANOCOBALAMIN, FOLIC ACID, PYRIDOXINE) [Concomitant]
  14. KLOR-CON [Concomitant]

REACTIONS (1)
  - RENAL FAILURE ACUTE [None]
